FAERS Safety Report 23346141 (Version 2)
Quarter: 2024Q1

REPORT INFORMATION
  Report Type: Report from Study
  Country: US (occurrence: US)
  Receive Date: 20231228
  Receipt Date: 20240108
  Transmission Date: 20240410
  Serious: Yes (Other)
  Sender: FDA-Public Use
  Company Number: US-JNJFOC-20231252818

PATIENT
  Age: 70 Year

DRUGS (1)
  1. STELARA [Suspect]
     Active Substance: USTEKINUMAB
     Indication: Crohn^s disease
     Route: 040

REACTIONS (4)
  - Seizure [Not Recovered/Not Resolved]
  - Pain in extremity [Unknown]
  - Neck pain [Unknown]
  - Malaise [Unknown]

NARRATIVE: CASE EVENT DATE: 20231218
